FAERS Safety Report 14269198 (Version 2)
Quarter: 2017Q4

REPORT INFORMATION
  Report Type: Spontaneous
  Country: IT (occurrence: IT)
  Receive Date: 20171211
  Receipt Date: 20171218
  Transmission Date: 20180321
  Serious: Yes (Hospitalization)
  Sender: FDA-Public Use
  Company Number: IT-TEVA-546208ISR

PATIENT
  Sex: Male

DRUGS (1)
  1. NEBIVOLOL. [Suspect]
     Active Substance: NEBIVOLOL
     Indication: TACHYCARDIA
     Dosage: 5 MILLIGRAM DAILY;
     Route: 064

REACTIONS (8)
  - Hypoglycaemia [Recovered/Resolved]
  - Activated partial thromboplastin time prolonged [Recovered/Resolved]
  - Hyponatraemia [Recovered/Resolved]
  - Prothrombin time prolonged [Recovered/Resolved]
  - Jaundice [Recovered/Resolved]
  - Foetal exposure during pregnancy [Recovered/Resolved]
  - Thrombocytopenia [Recovered/Resolved]
  - Polycythaemia [Recovered/Resolved]
